FAERS Safety Report 24767847 (Version 1)
Quarter: 2024Q4

REPORT INFORMATION
  Report Type: Spontaneous
  Country: US (occurrence: US)
  Receive Date: 20241223
  Receipt Date: 20241223
  Transmission Date: 20250115
  Serious: No
  Sender: INCYTE
  Company Number: US-EVENT-000775

PATIENT

DRUGS (1)
  1. OPZELURA [Suspect]
     Active Substance: RUXOLITINIB PHOSPHATE
     Indication: Vitiligo
     Dosage: APPLY A THIN LAYER TO AFFECTED AREA(S) ON FACE, ARMS, AND LEGS TWICE DAILY AS DIRECTED.
     Route: 065
     Dates: start: 202406

REACTIONS (2)
  - Vitiligo [Unknown]
  - Product availability issue [Unknown]
